FAERS Safety Report 23044402 (Version 2)
Quarter: 2023Q4

REPORT INFORMATION
  Report Type: Spontaneous
  Country: GB (occurrence: GB)
  Receive Date: 20231009
  Receipt Date: 20231019
  Transmission Date: 20240110
  Serious: Yes (Hospitalization, Other)
  Sender: FDA-Public Use
  Company Number: None

PATIENT
  Age: 12 Year
  Sex: Female
  Weight: 50 kg

DRUGS (12)
  1. ABATACEPT [Suspect]
     Active Substance: ABATACEPT
     Indication: Juvenile idiopathic arthritis
     Dosage: 10 MG/KG, TIW
     Route: 042
     Dates: start: 20160505, end: 20190605
  2. ABATACEPT [Suspect]
     Active Substance: ABATACEPT
     Dosage: 10 MG/KG, TIW
     Route: 042
  3. ABATACEPT [Suspect]
     Active Substance: ABATACEPT
     Dosage: 10 MG/KG, Q3W
     Route: 042
  4. ABATACEPT [Suspect]
     Active Substance: ABATACEPT
     Dosage: 400 MG/KG
     Route: 065
  5. METHOTREXATE [Suspect]
     Active Substance: METHOTREXATE
     Dosage: 22.5 MG
     Route: 058
  6. METHOTREXATE [Suspect]
     Active Substance: METHOTREXATE
     Indication: Juvenile idiopathic arthritis
     Dosage: 22.5 MILLIGRAM
     Route: 058
     Dates: start: 2008, end: 20190611
  7. FOLIC ACID [Concomitant]
     Active Substance: FOLIC ACID
     Indication: Product used for unknown indication
     Dosage: UNK
     Route: 065
  8. LANSOPRAZOLE [Concomitant]
     Active Substance: LANSOPRAZOLE
     Indication: Product used for unknown indication
     Dosage: UNK
     Route: 065
  9. NAPROXEN [Concomitant]
     Active Substance: NAPROXEN
     Indication: Product used for unknown indication
     Dosage: UNK
     Route: 065
  10. NAPROXEN [Concomitant]
     Active Substance: NAPROXEN
     Dosage: UNK
     Route: 065
  11. PREDNISOLONE [Concomitant]
     Active Substance: PREDNISOLONE
     Indication: Product used for unknown indication
     Dosage: 5 MG, QD
     Route: 065
  12. PREDNISOLONE [Concomitant]
     Active Substance: PREDNISOLONE
     Dosage: 5 MG, QID
     Route: 065

REACTIONS (13)
  - Personality change [Unknown]
  - Generalised tonic-clonic seizure [Unknown]
  - Demyelination [Unknown]
  - Lymphoma [Unknown]
  - Feeling abnormal [Unknown]
  - Affect lability [Unknown]
  - Progressive multifocal leukoencephalopathy [Unknown]
  - Encephalitis autoimmune [Unknown]
  - Malaise [Unknown]
  - Headache [Unknown]
  - Encephalitis [Unknown]
  - Drug ineffective [Unknown]
  - Off label use [Unknown]

NARRATIVE: CASE EVENT DATE: 20190610
